FAERS Safety Report 25158150 (Version 1)
Quarter: 2025Q2

REPORT INFORMATION
  Report Type: Report from Study
  Country: US (occurrence: US)
  Receive Date: 20250404
  Receipt Date: 20250404
  Transmission Date: 20250717
  Serious: Yes (Other)
  Sender: JOHNSON AND JOHNSON
  Company Number: US-JNJFOC-20250370568

PATIENT
  Age: 44 Year
  Sex: Male

DRUGS (3)
  1. SPRAVATO [Suspect]
     Active Substance: ESKETAMINE
     Indication: Depression
     Route: 045
     Dates: start: 20250314, end: 20250321
  2. SPRAVATO [Suspect]
     Active Substance: ESKETAMINE
     Dosage: ^^84 MG, 1 TOTAL DOSE^^
     Route: 045
     Dates: start: 20250325, end: 20250325
  3. LEXAPRO [Suspect]
     Active Substance: ESCITALOPRAM OXALATE
     Dates: start: 202503

REACTIONS (5)
  - Suicidal ideation [Not Recovered/Not Resolved]
  - Brain fog [Unknown]
  - Head discomfort [Not Recovered/Not Resolved]
  - Pain [Not Recovered/Not Resolved]
  - Nausea [Not Recovered/Not Resolved]

NARRATIVE: CASE EVENT DATE: 20250301
